FAERS Safety Report 17368754 (Version 1)
Quarter: 2020Q1

REPORT INFORMATION
  Report Type: Spontaneous
  Country: FR (occurrence: FR)
  Receive Date: 20200204
  Receipt Date: 20200204
  Transmission Date: 20200409
  Serious: Yes (Hospitalization, Other)
  Sender: FDA-Public Use
  Company Number: FR-AMGEN-FRASP2020016397

PATIENT
  Age: 77 Year
  Sex: Female
  Weight: 54 kg

DRUGS (3)
  1. KYPROLIS [Suspect]
     Active Substance: CARFILZOMIB
     Indication: PLASMA CELL MYELOMA
     Dosage: 27 MILLIGRAM/SQ. METER, 2 TIMES/WK FOR 3 WEEKS
     Route: 042
     Dates: start: 20190605, end: 20200109
  2. IMNOVID [Suspect]
     Active Substance: POMALIDOMIDE
     Indication: PLASMA CELL MYELOMA
     Dosage: 4 MILLIGRAM, QD, 21 DAYS OUT OF 28
     Route: 042
     Dates: start: 20190605, end: 20200109
  3. DEXAMETHASONE. [Suspect]
     Active Substance: DEXAMETHASONE
     Indication: PLASMA CELL MYELOMA
     Dosage: 40 MILLIGRAM, QWK
     Route: 048
     Dates: start: 20190605, end: 20200109

REACTIONS (5)
  - Pancytopenia [Recovering/Resolving]
  - Atrial flutter [Not Recovered/Not Resolved]
  - Tachycardia [Not Recovered/Not Resolved]
  - Cardiac failure [Not Recovered/Not Resolved]
  - Acute pulmonary oedema [Recovering/Resolving]

NARRATIVE: CASE EVENT DATE: 201911
